FAERS Safety Report 7009618-3 (Version None)
Quarter: 2010Q3

REPORT INFORMATION
  Report Type: 
  Country: None (occurrence: None)
  Receive Date: 20100923
  Receipt Date: 20100914
  Transmission Date: 20110219
  Serious: Yes (Other)
  Sender: FDA-Public Use
  Company Number: JP-PFIZER INC-2010116242

PATIENT
  Age: 87 Year
  Sex: Female

DRUGS (9)
  1. NORVASC [Suspect]
     Indication: HYPERTENSION
     Dosage: 2.5 MG, 1X/DAY
     Route: 048
     Dates: end: 20071004
  2. ZANTAC [Suspect]
     Indication: GASTRITIS PROPHYLAXIS
     Dosage: 150 MG, 1X/DAY
     Route: 048
     Dates: end: 20070614
  3. GRAMALIL [Suspect]
     Indication: DEMENTIA ALZHEIMER'S TYPE
     Dosage: 2.5 MG, 3X/DAY
     Route: 048
     Dates: end: 20070122
  4. GRAMALIL [Suspect]
     Dosage: 2.5 MG, 1X/DAY
     Route: 048
     Dates: start: 20070123, end: 20070809
  5. GRAMALIL [Suspect]
     Dosage: 1.25 MG, 1X/DAY
     Route: 048
     Dates: start: 20070810
  6. TICLOPIN [Concomitant]
     Indication: CEREBRAL INFARCTION
     Dosage: 100 MG, 1X/DAY
     Route: 048
     Dates: end: 20080324
  7. DEPAS [Concomitant]
     Indication: INSOMNIA
     Dosage: 0.5 MG, 1X/DAY
     Route: 048
  8. MYSLEE [Concomitant]
     Indication: INSOMNIA
     Dosage: 5 MG, 1X/DAY
     Route: 048
  9. GASLON [Concomitant]
     Indication: GASTRITIS PROPHYLAXIS
     Dosage: 4 MG, 1X/DAY
     Route: 048
     Dates: start: 20070614

REACTIONS (1)
  - PARKINSONISM [None]
